FAERS Safety Report 17370341 (Version 2)
Quarter: 2020Q1

REPORT INFORMATION
  Report Type: Spontaneous
  Country: DE (occurrence: DE)
  Receive Date: 20200205
  Receipt Date: 20200226
  Transmission Date: 20200409
  Serious: Yes (Hospitalization)
  Sender: FDA-Public Use
  Company Number: DE-EISAI MEDICAL RESEARCH-EC-2020-069265

PATIENT
  Age: 41 Year
  Sex: Male
  Weight: 97 kg

DRUGS (5)
  1. VALPROATE [Concomitant]
     Active Substance: VALPROIC ACID
     Indication: LENNOX-GASTAUT SYNDROME
     Dosage: FREQUENCY UNKNOWN
     Route: 048
     Dates: start: 2007
  2. LEVOMEPROMAZIN [Concomitant]
     Active Substance: LEVOMEPROMAZINE
     Indication: BEHAVIOUR DISORDER
     Dosage: FREQUENCY UNKNOWN
     Route: 048
     Dates: start: 2007
  3. FYCOMPA [Suspect]
     Active Substance: PERAMPANEL
     Indication: LENNOX-GASTAUT SYNDROME
     Route: 048
     Dates: start: 20171218, end: 20200111
  4. CHLORPROTHIXEN [Concomitant]
     Active Substance: CHLORPROTHIXENE HYDROCHLORIDE
     Indication: BEHAVIOUR DISORDER
     Dosage: FREQUENCY UNKNOWN
     Route: 048
     Dates: start: 2007
  5. FYCOMPA [Suspect]
     Active Substance: PERAMPANEL
     Route: 048
     Dates: start: 20200112

REACTIONS (2)
  - Seizure [Recovered/Resolved]
  - Abnormal behaviour [Recovered/Resolved]

NARRATIVE: CASE EVENT DATE: 20200112
